FAERS Safety Report 9904315 (Version 1)
Quarter: 2014Q1

REPORT INFORMATION
  Report Type: Spontaneous
  Country: US (occurrence: US)
  Receive Date: 20140218
  Receipt Date: 20140218
  Transmission Date: 20141002
  Serious: No
  Sender: FDA-Public Use
  Company Number: US-PFIZER INC-2014043058

PATIENT
  Age: 83 Year
  Sex: Female
  Weight: 78.01 kg

DRUGS (1)
  1. ADVIL GELCAPS [Suspect]
     Indication: PAIN
     Dosage: 200 MG, THREE TIMES A DAY
     Dates: start: 201401

REACTIONS (1)
  - Decreased appetite [Unknown]
